FAERS Safety Report 8072292-1 (Version None)
Quarter: 2012Q1

REPORT INFORMATION
  Report Type: 
  Country: None (occurrence: None)
  Receive Date: 20120126
  Receipt Date: 20120118
  Transmission Date: 20120608
  Serious: Yes (Hospitalization, Other)
  Sender: FDA-Public Use
  Company Number: JP-ASTELLAS-2012US000760

PATIENT
  Sex: Male
  Weight: 55 kg

DRUGS (13)
  1. SELBEX [Concomitant]
     Indication: PRODUCT USED FOR UNKNOWN INDICATION
     Dosage: 1.5 DF, UID/QD
     Route: 065
  2. GEMCITABINE [Suspect]
     Indication: PANCREATIC CARCINOMA
     Dosage: UNK
     Route: 041
     Dates: start: 20110902, end: 20110916
  3. SENNOSIDE [Concomitant]
     Indication: PRODUCT USED FOR UNKNOWN INDICATION
     Dosage: 36 DF, UID/QD
     Route: 065
  4. TOUGHMAC E [Concomitant]
     Indication: PRODUCT USED FOR UNKNOWN INDICATION
     Dosage: 3 DF, UID/QD
     Route: 065
     Dates: start: 20110913
  5. ERLOTINIB HYDROCHLORIDE [Suspect]
     Indication: PANCREATIC CARCINOMA
     Dosage: 100 MG, UID/QD
     Route: 048
     Dates: start: 20110909, end: 20110916
  6. MAGMITT [Concomitant]
     Indication: PRODUCT USED FOR UNKNOWN INDICATION
     Dosage: 990 DF, UID/QD
     Route: 065
  7. TRICHLORMETHIAZIDE [Concomitant]
     Indication: PRODUCT USED FOR UNKNOWN INDICATION
     Dosage: 4 DF, UID/QD
     Route: 065
  8. LANSOPRAZOLE [Concomitant]
     Indication: PRODUCT USED FOR UNKNOWN INDICATION
     Dosage: 15 DF, UID/QD
     Route: 065
  9. ERLOTINIB HYDROCHLORIDE [Suspect]
     Dosage: 100 MG, UID/QD
     Route: 048
     Dates: start: 20110921
  10. BISOPROLOL FUMARATE [Concomitant]
     Indication: PRODUCT USED FOR UNKNOWN INDICATION
     Dosage: 10 DF, UID/QD
     Route: 065
     Dates: start: 20111028
  11. OXYCONTIN [Concomitant]
     Indication: PRODUCT USED FOR UNKNOWN INDICATION
     Dosage: 10 DF, UID/QD
     Route: 065
     Dates: start: 20110908
  12. OLMESARTAN MEDOXOMIL [Concomitant]
     Indication: PRODUCT USED FOR UNKNOWN INDICATION
     Dosage: 40 DF, UNKNOWN/D
     Route: 065
  13. CONIEL [Concomitant]
     Indication: PRODUCT USED FOR UNKNOWN INDICATION
     Dosage: 8 DF, UID/QD
     Route: 065

REACTIONS (3)
  - RASH [None]
  - CHOLANGITIS [None]
  - PNEUMONIA BACTERIAL [None]
